FAERS Safety Report 22144417 (Version 4)
Quarter: 2024Q4

REPORT INFORMATION
  Report Type: Report from Study
  Country: US (occurrence: US)
  Receive Date: 20230328
  Receipt Date: 20241219
  Transmission Date: 20250115
  Serious: No
  Sender: ACADIA PHARMACEUTICALS
  Company Number: US-ACADIA PHARMACEUTICALS INC.-ACA-2023-PIM-000897

PATIENT
  Sex: Male

DRUGS (2)
  1. NUPLAZID [Suspect]
     Active Substance: PIMAVANSERIN TARTRATE
     Indication: Parkinson^s disease
     Dosage: 34 MILLIGRAM, QD, LATE IN THE DAY
     Route: 048
     Dates: start: 20211104
  2. NUPLAZID [Suspect]
     Active Substance: PIMAVANSERIN TARTRATE
     Dosage: 34 MILLIGRAM, QD, LATE IN THE DAY
     Route: 048

REACTIONS (6)
  - Nonspecific reaction [Unknown]
  - Product dose omission issue [Unknown]
  - Product dose omission issue [Recovered/Resolved]
  - Nonspecific reaction [Unknown]
  - Constipation [Unknown]
  - Confusional state [Unknown]
